FAERS Safety Report 8885659 (Version 2)
Quarter: 2013Q1

REPORT INFORMATION
  Report Type: Spontaneous
  Country: BR (occurrence: BR)
  Receive Date: 20121105
  Receipt Date: 20130122
  Transmission Date: 20140127
  Serious: Yes (Hospitalization, Other)
  Sender: FDA-Public Use
  Company Number: PHHY2012BR097888

PATIENT
  Age: 51 Year
  Sex: Male
  Weight: 80 kg

DRUGS (10)
  1. DIOVAN [Suspect]
     Indication: HYPERTENSION
     Dosage: 1 DF, DAILY (320 MG)
     Route: 048
     Dates: start: 20090317, end: 200911
  2. DIOVAN [Suspect]
     Dosage: 1 DF, QD (160 MG IN THE MORNING)
     Route: 048
     Dates: start: 20091130
  3. MONOCORDIL [Suspect]
     Dosage: 1 DF, TID
     Route: 048
  4. ATACAND [Suspect]
     Indication: HYPERTENSION
     Dosage: 1 DF, DAILY
     Route: 048
     Dates: start: 2010
  5. SUSTRATE [Suspect]
     Indication: CHEST PAIN
     Dosage: 1 DF, DAILY
     Route: 048
  6. ISORDIL [Suspect]
     Indication: CHEST PAIN
     Dosage: 1 DF, PRN
     Route: 060
  7. LIPITOR [Concomitant]
     Indication: BLOOD CHOLESTEROL
     Dosage: 70 MG, DAILY
     Dates: start: 2009
  8. VASTAREL [Concomitant]
     Indication: CARDIAC DISORDER
     Dosage: 35 MG, BID (AT 8AM AND 8 PM)
  9. RIVOTRIL [Concomitant]
     Indication: SLEEP DISORDER
     Dosage: 2 MG, QD (AT NIGHT)
  10. CITALOPRAM [Concomitant]
     Indication: DEPRESSION
     Dosage: 20 MG, QD (AT 7 AM)

REACTIONS (2)
  - Angina pectoris [Not Recovered/Not Resolved]
  - Vascular occlusion [Not Recovered/Not Resolved]
